FAERS Safety Report 24136610 (Version 3)
Quarter: 2024Q3

REPORT INFORMATION
  Report Type: Spontaneous
  Country: US (occurrence: US)
  Receive Date: 20240725
  Receipt Date: 20240913
  Transmission Date: 20241016
  Serious: No
  Sender: GLAXOSMITHKLINE
  Company Number: US-GLAXOSMITHKLINE-US2024AMR091189

PATIENT
  Sex: Female

DRUGS (1)
  1. ZEJULA [Suspect]
     Active Substance: NIRAPARIB
     Indication: Malignant peritoneal neoplasm
     Dosage: 300 MG, QD

REACTIONS (6)
  - Constipation [Unknown]
  - Oedema peripheral [Unknown]
  - Nausea [Unknown]
  - Carbohydrate antigen 125 increased [Unknown]
  - Abdominal pain [Unknown]
  - Peripheral swelling [Unknown]
